FAERS Safety Report 7617696-3 (Version None)
Quarter: 2011Q3

REPORT INFORMATION
  Report Type: 
  Country: None (occurrence: None)
  Receive Date: 20110718
  Receipt Date: 20110706
  Transmission Date: 20111222
  Serious: Yes (Hospitalization, Other)
  Sender: FDA-Public Use
  Company Number: PHHY2011PT45764

PATIENT
  Age: 60 Year
  Sex: Male

DRUGS (1)
  1. ALLOPURINOL [Suspect]
     Dosage: UNK

REACTIONS (4)
  - TOXIC EPIDERMAL NECROLYSIS [None]
  - SKIN HYPOPIGMENTATION [None]
  - EYE DISORDER [None]
  - BACTERIAL SEPSIS [None]
